FAERS Safety Report 9141217 (Version 1)
Quarter: 2013Q1

REPORT INFORMATION
  Report Type: Spontaneous
  Country: US (occurrence: US)
  Receive Date: 20130305
  Receipt Date: 20130305
  Transmission Date: 20140127
  Serious: No
  Sender: FDA-Public Use
  Company Number: US-AMGEN-USASP2013008627

PATIENT
  Age: 46 Year
  Sex: Female

DRUGS (4)
  1. ENBREL [Suspect]
     Indication: RHEUMATOID ARTHRITIS
     Dosage: 50 MG, QWK
     Dates: start: 20120817, end: 20120917
  2. METHOTREXATE [Concomitant]
     Dosage: 17.5 MG, QWK
  3. HUMIRA [Concomitant]
     Dosage: UNK
  4. SIMPONI [Concomitant]
     Dosage: UNK

REACTIONS (5)
  - Injection site erythema [Recovered/Resolved]
  - Injection site warmth [Recovered/Resolved]
  - Injection site discolouration [Recovered/Resolved]
  - Injection site bruising [Not Recovered/Not Resolved]
  - Injection site reaction [Unknown]
